FAERS Safety Report 6764467-6 (Version None)
Quarter: 2010Q2

REPORT INFORMATION
  Report Type: 
  Country: None (occurrence: None)
  Receive Date: 20100610
  Receipt Date: 20100602
  Transmission Date: 20101027
  Serious: Yes (Other)
  Sender: FDA-Public Use
  Company Number: US-WYE-H15351610

PATIENT
  Sex: Female
  Weight: 49.94 kg

DRUGS (4)
  1. PREMARIN [Suspect]
     Indication: DRUG USE FOR UNKNOWN INDICATION
     Route: 067
     Dates: start: 20090101, end: 20100101
  2. PREMARIN [Suspect]
     Route: 067
     Dates: start: 20100317
  3. EQUATE ALLERGY MEDICATION [Concomitant]
     Indication: HYPERSENSITIVITY
     Dosage: UNKNOWN STRENGTH; AS NEEDED
     Route: 065
     Dates: start: 20091201
  4. EQUATE ALLERGY MEDICATION [Concomitant]
     Indication: SINUS CONGESTION

REACTIONS (4)
  - APPLICATION SITE BLEEDING [None]
  - APPLICATION SITE PAIN [None]
  - CEREBROVASCULAR DISORDER [None]
  - PRODUCT QUALITY ISSUE [None]
